FAERS Safety Report 8345930-3 (Version None)
Quarter: 2012Q2

REPORT INFORMATION
  Report Type: 
  Country: None (occurrence: None)
  Receive Date: 20120507
  Receipt Date: 20120426
  Transmission Date: 20120825
  Serious: Yes (Other)
  Sender: FDA-Public Use
  Company Number: 7069443

PATIENT
  Age: 32 Year
  Sex: Female

DRUGS (6)
  1. METHIMAZOLE [Suspect]
     Indication: HYPERTHYROIDISM
     Dosage: (2 IN 1 D)
     Dates: start: 20110301, end: 20110101
  2. DEXAMETHASONE [Suspect]
     Indication: NASOPHARYNGITIS
  3. AMIDOPYRINE COMPOUND (AMINOPHENAZONE) (AMIDOPYRINE) [Suspect]
     Indication: NASOPHARYNGITIS
  4. RIBAVIRIN [Suspect]
     Indication: NASOPHARYNGITIS
  5. LEVOTHYROXINE SODIUM [Suspect]
     Indication: HYPERTHYROIDISM
     Dosage: (1 DF, 1 IN 1 D)
     Dates: start: 20110301, end: 20110101
  6. ANALGIN (METAMIZOLE SODIUM) (ANALGIN) [Suspect]
     Indication: NASOPHARYNGITIS

REACTIONS (3)
  - PREGNANCY [None]
  - MATERNAL EXPOSURE DURING PREGNANCY [None]
  - ABORTION INDUCED [None]
